FAERS Safety Report 6266817-6 (Version None)
Quarter: 2009Q3

REPORT INFORMATION
  Report Type: 
  Country: None (occurrence: None)
  Receive Date: 20090714
  Receipt Date: 20090703
  Transmission Date: 20100115
  Serious: Yes (Hospitalization)
  Sender: FDA-Public Use
  Company Number: DE-JNJFOC-20090703509

PATIENT
  Age: 69 Year
  Sex: Female
  Weight: 59 kg

DRUGS (1)
  1. HALOPERIDOL [Suspect]
     Indication: KORSAKOFF'S PSYCHOSIS NON-ALCOHOLIC
     Route: 048

REACTIONS (1)
  - MYOCARDIAL INFARCTION [None]
